FAERS Safety Report 25357319 (Version 3)
Quarter: 2025Q3

REPORT INFORMATION
  Report Type: Report from Study
  Country: US (occurrence: US)
  Receive Date: 20250526
  Receipt Date: 20250802
  Transmission Date: 20251020
  Serious: Yes (Hospitalization, Other)
  Sender: ALEXION PHARMACEUTICALS
  Company Number: US-AstraZeneca-CH-00874697A

PATIENT
  Age: 70 Year
  Sex: Female
  Weight: 82.6 kg

DRUGS (28)
  1. TEZEPELUMAB [Suspect]
     Active Substance: TEZEPELUMAB
     Indication: Asthma
  2. PRILOSEC [Suspect]
     Active Substance: OMEPRAZOLE MAGNESIUM
     Dosage: 20 MILLIGRAM, QD
  3. TRELEGY ELLIPTA [Concomitant]
     Active Substance: FLUTICASONE FUROATE\UMECLIDINIUM BROMIDE\VILANTEROL TRIFENATATE
     Route: 065
  4. PREDNISONE [Concomitant]
     Active Substance: PREDNISONE
     Route: 065
  5. PROVENTIL [Concomitant]
     Active Substance: ALBUTEROL
     Indication: Dyspnoea
     Route: 065
  6. PROVENTIL [Concomitant]
     Active Substance: ALBUTEROL
     Indication: Wheezing
  7. ELAVIL [Concomitant]
     Active Substance: AMITRIPTYLINE HYDROCHLORIDE
     Route: 065
  8. ASTELIN [Concomitant]
     Active Substance: AZELASTINE HYDROCHLORIDE
  9. REFRESH PLUS [Concomitant]
     Active Substance: CARBOXYMETHYLCELLULOSE SODIUM
     Route: 065
  10. CELEXA [Concomitant]
     Active Substance: CITALOPRAM HYDROBROMIDE
     Route: 065
  11. COLCHICINE [Concomitant]
     Active Substance: COLCHICINE
  12. BENTYL [Concomitant]
     Active Substance: DICYCLOMINE HYDROCHLORIDE
  13. CARDIZEM [Concomitant]
     Active Substance: DILTIAZEM HYDROCHLORIDE
     Dosage: 180 MILLIGRAM, QD
     Route: 065
  14. LOMOTIL [Concomitant]
     Active Substance: ATROPINE SULFATE\DIPHENOXYLATE HYDROCHLORIDE
     Route: 065
  15. EVOXAC [Concomitant]
     Active Substance: CEVIMELINE HYDROCHLORIDE
     Dosage: 30 MILLIGRAM, QD
     Route: 065
  16. HYDROCORTISONE [Concomitant]
     Active Substance: HYDROCORTISONE
     Route: 065
  17. ATIVAN [Concomitant]
     Active Substance: LORAZEPAM
     Route: 065
  18. BACTROBAN [Concomitant]
     Active Substance: MUPIROCIN CALCIUM
     Route: 065
  19. PATANOL [Concomitant]
     Active Substance: OLOPATADINE HYDROCHLORIDE
  20. ROXICODONE [Concomitant]
     Active Substance: OXYCODONE HYDROCHLORIDE
  21. DELTASONE [Concomitant]
     Active Substance: PREDNISONE
     Dosage: 40 MILLIGRAM, QD
  22. LYRICA [Concomitant]
     Active Substance: PREGABALIN
     Route: 065
  23. PHENERGAN [Concomitant]
     Active Substance: PROMETHAZINE HYDROCHLORIDE
  24. YUPELRI [Concomitant]
     Active Substance: REVEFENACIN
     Dosage: 3 MILLILITER, QD
     Route: 065
  25. RISPERDAL [Concomitant]
     Active Substance: RISPERIDONE
     Route: 065
  26. ZOCOR [Concomitant]
     Active Substance: SIMVASTATIN
     Route: 065
  27. ZANAFLEX [Concomitant]
     Active Substance: TIZANIDINE HYDROCHLORIDE
     Route: 065
  28. VENTOLIN [Concomitant]
     Active Substance: ALBUTEROL SULFATE
     Route: 065

REACTIONS (8)
  - Hiatus hernia [Unknown]
  - Pneumonia [Unknown]
  - Asthma [Recovering/Resolving]
  - Gastrooesophageal reflux disease [Recovering/Resolving]
  - Drug ineffective [Unknown]
  - Oedema [Unknown]
  - Dry skin [Unknown]
  - Lung hyperinflation [Unknown]

NARRATIVE: CASE EVENT DATE: 20240601
